FAERS Safety Report 13065197 (Version 1)
Quarter: 2016Q4

REPORT INFORMATION
  Report Type: Spontaneous
  Country: US (occurrence: US)
  Receive Date: 20161227
  Receipt Date: 20161227
  Transmission Date: 20170207
  Serious: Yes (Life-Threatening, Hospitalization)
  Sender: FDA-Public Use
  Company Number: None

PATIENT
  Age: 60 Year
  Sex: Male
  Weight: 61.5 kg

DRUGS (1)
  1. AZITHROMYCIN ANHYDROUS. [Suspect]
     Active Substance: AZITHROMYCIN ANHYDROUS
     Indication: UPPER RESPIRATORY TRACT INFECTION
     Route: 042
     Dates: start: 20161013, end: 20161013

REACTIONS (3)
  - Cough [None]
  - Respiratory depression [None]
  - Wheezing [None]

NARRATIVE: CASE EVENT DATE: 20161013
